FAERS Safety Report 18208597 (Version 2)
Quarter: 2020Q4

REPORT INFORMATION
  Report Type: Spontaneous
  Country: US (occurrence: US)
  Receive Date: 20200828
  Receipt Date: 20201117
  Transmission Date: 20210113
  Serious: Yes (Death, Hospitalization, Other)
  Sender: FDA-Public Use
  Company Number: US-PURDUE-USA-2020-0163191

PATIENT
  Age: 64 Year
  Sex: Female

DRUGS (2)
  1. OPANA [Suspect]
     Active Substance: OXYMORPHONE HYDROCHLORIDE
     Indication: PRODUCT USED FOR UNKNOWN INDICATION
     Dosage: UNK
     Route: 065
  2. OXYCONTIN [Suspect]
     Active Substance: OXYCODONE HYDROCHLORIDE
     Indication: PRODUCT USED FOR UNKNOWN INDICATION
     Dosage: UNK
     Route: 048
     Dates: start: 201601

REACTIONS (9)
  - Multiple organ dysfunction syndrome [Fatal]
  - Hospitalisation [Unknown]
  - Dialysis [Unknown]
  - Drug dependence [Unknown]
  - Obesity [Fatal]
  - Internal haemorrhage [Fatal]
  - Shock haemorrhagic [Fatal]
  - Upper gastrointestinal haemorrhage [Fatal]
  - Renal disorder [Unknown]

NARRATIVE: CASE EVENT DATE: 20200317
